FAERS Safety Report 21069352 (Version 1)
Quarter: 2022Q3

REPORT INFORMATION
  Report Type: Spontaneous
  Country: US (occurrence: None)
  Receive Date: 20220711
  Receipt Date: 20220711
  Transmission Date: 20221027
  Serious: Yes (Death)
  Sender: FDA-Public Use
  Company Number: None

PATIENT
  Age: 64 Year
  Sex: Female
  Weight: 92 kg

DRUGS (3)
  1. REMDESIVIR [Suspect]
     Active Substance: REMDESIVIR
     Indication: COVID-19
  2. COSMETICS [Suspect]
     Active Substance: COSMETICS
  3. REMDESIVIR [Concomitant]
     Active Substance: REMDESIVIR
     Dates: start: 20220522, end: 20220523

REACTIONS (3)
  - Abdominal pain upper [None]
  - Ocular icterus [None]
  - Yellow skin [None]

NARRATIVE: CASE EVENT DATE: 20220522
